FAERS Safety Report 8617121-X (Version None)
Quarter: 2012Q3

REPORT INFORMATION
  Report Type: 
  Country: None (occurrence: None)
  Receive Date: 20120823
  Receipt Date: 20120817
  Transmission Date: 20120928
  Serious: No
  Sender: FDA-Public Use
  Company Number: US-PFIZER INC-2012203551

PATIENT
  Age: 7 Year
  Sex: Male
  Weight: 21.769 kg

DRUGS (6)
  1. MULTI-VITAMINS [Concomitant]
     Dosage: UNK
  2. GENOTROPIN [Suspect]
     Dosage: 1 MG, UNK
  3. TRIAMCINOLONE [Concomitant]
     Dosage: UNK
  4. TINACTIN [Concomitant]
     Dosage: UNK
  5. GENOTROPIN [Suspect]
     Dosage: 0.8 MG DAILY
     Route: 058
  6. ADAPALENE/BENZOYL PEROXIDE [Concomitant]
     Dosage: UNK

REACTIONS (3)
  - TIC [None]
  - TREMOR [None]
  - ACNE [None]
